FAERS Safety Report 6551399-1 (Version None)
Quarter: 2010Q1

REPORT INFORMATION
  Report Type: 
  Country: None (occurrence: None)
  Receive Date: 20100120
  Receipt Date: 20100114
  Transmission Date: 20100710
  Serious: Yes (Hospitalization)
  Sender: FDA-Public Use
  Company Number: SPV1-2009-02367

PATIENT
  Age: 67 Year
  Sex: Female

DRUGS (11)
  1. FOSRENOL [Suspect]
     Indication: RENAL FAILURE CHRONIC
     Dosage: ORAL
     Route: 048
     Dates: start: 20091021, end: 20091027
  2. FOSRENOL [Suspect]
     Indication: RENAL FAILURE CHRONIC
     Dosage: ORAL
     Route: 048
     Dates: start: 20091029, end: 20091119
  3. AMLODIPINE BESYLATE [Concomitant]
  4. DIOVAN [Concomitant]
  5. PLAVIX [Concomitant]
  6. CARVEDILOL [Concomitant]
  7. ARGAMATE (CALCIUM POLYSTYRENE SULFONATE) [Concomitant]
  8. CALTAN (CALCIUM CARBONATE) [Concomitant]
  9. MARZULENE-S (AZULENE, LEVOGLUTAMIDE, SODIUM GUALENATE) [Concomitant]
  10. EPOGEN [Concomitant]
  11. MERCAZOLE (THIAMAZOLE) [Concomitant]

REACTIONS (10)
  - ALBUMIN URINE PRESENT [None]
  - BLOOD CALCIUM DECREASED [None]
  - BLOOD CHLORIDE DECREASED [None]
  - BLOOD GLUCOSE INCREASED [None]
  - BLOOD PRESSURE INCREASED [None]
  - BLOOD SODIUM INCREASED [None]
  - CONVULSION [None]
  - HEADACHE [None]
  - HEART RATE DECREASED [None]
  - LOSS OF CONSCIOUSNESS [None]
